FAERS Safety Report 7837664 (Version 2)
Quarter: 2013Q3

REPORT INFORMATION
  Report Type: Spontaneous
  Country: US (occurrence: US)
  Receive Date: 20110302
  Receipt Date: 20130813
  Transmission Date: 20140515
  Serious: Yes (Hospitalization, Other)
  Sender: FDA-Public Use
  Company Number: US-PFIZER INC-2010007244

PATIENT
  Age: 58 Year
  Sex: Male

DRUGS (6)
  1. DILANTIN-125 [Suspect]
     Indication: CONVULSION
     Dosage: 200 MG, 3X/DAY
     Route: 048
     Dates: start: 20080111, end: 20080207
  2. DECADRON [Concomitant]
     Dosage: 4 MG, EVERY 4 HRS
  3. COLACE [Concomitant]
     Dosage: 100 MG, 1X/DAY
  4. PEPCID [Concomitant]
     Dosage: 20 MG, 1X/DAY
  5. FLOMAX [Concomitant]
     Dosage: 4 MG, 1X/DAY
  6. DESYREL [Concomitant]
     Dosage: 50 MG, UNK

REACTIONS (2)
  - Stevens-Johnson syndrome [Unknown]
  - Toxic epidermal necrolysis [Unknown]
